FAERS Safety Report 10156683 (Version 1)
Quarter: 2014Q2

REPORT INFORMATION
  Report Type: Spontaneous
  Country: AU (occurrence: None)
  Receive Date: 20140505
  Receipt Date: 20140505
  Transmission Date: 20141212
  Serious: Yes (Disabling)
  Sender: FDA-Public Use
  Company Number: 2014AP002775

PATIENT
  Age: 77 Year
  Sex: Female

DRUGS (1)
  1. SERTRALINE [Suspect]
     Route: 048
     Dates: start: 20140227, end: 20140227

REACTIONS (4)
  - Loss of consciousness [None]
  - Faecal incontinence [None]
  - Tachycardia [None]
  - Hyperhidrosis [None]
